FAERS Safety Report 5954833-0 (Version None)
Quarter: 2008Q4

REPORT INFORMATION
  Report Type: 
  Country: None (occurrence: None)
  Receive Date: 20081113
  Receipt Date: 20081113
  Transmission Date: 20090506
  Serious: Yes (Life-Threatening)
  Sender: FDA-Public Use
  Company Number: None

PATIENT
  Age: 51 Year
  Sex: Female
  Weight: 57.1532 kg

DRUGS (2)
  1. CIPRALEX 20MG LUNDBECK [Suspect]
     Indication: DEPRESSED MOOD
     Dosage: 20MG DAILY PO
     Route: 048
     Dates: start: 20020501, end: 20080805
  2. CIPRALEX 20MG LUNDBECK [Suspect]
     Indication: SEASONAL AFFECTIVE DISORDER
     Dosage: 20MG DAILY PO
     Route: 048
     Dates: start: 20020501, end: 20080805

REACTIONS (12)
  - AGGRESSION [None]
  - ANGER [None]
  - ANXIETY [None]
  - BIPOLAR DISORDER [None]
  - CRYING [None]
  - DRUG WITHDRAWAL SYNDROME [None]
  - INSOMNIA [None]
  - IRRITABILITY [None]
  - MANIA [None]
  - PARAESTHESIA [None]
  - PHYSICAL ASSAULT [None]
  - RESTLESSNESS [None]
